FAERS Safety Report 12833280 (Version 1)
Quarter: 2016Q4

REPORT INFORMATION
  Report Type: Spontaneous
  Country: FR (occurrence: FR)
  Receive Date: 20161010
  Receipt Date: 20161010
  Transmission Date: 20170207
  Serious: Yes (Hospitalization, Other)
  Sender: FDA-Public Use
  Company Number: FR-SA-2016SA182175

PATIENT
  Sex: Female

DRUGS (1)
  1. AUBAGIO [Suspect]
     Active Substance: TERIFLUNOMIDE
     Indication: MULTIPLE SCLEROSIS
     Route: 065
     Dates: start: 20160910, end: 20160923

REACTIONS (14)
  - Neck pain [Recovered/Resolved]
  - Affective disorder [Unknown]
  - Chest pain [Recovered/Resolved]
  - Hyperhidrosis [Unknown]
  - Decreased appetite [Recovered/Resolved]
  - Fatigue [Recovered/Resolved]
  - Ear pain [Recovered/Resolved]
  - Influenza like illness [Unknown]
  - Malaise [Unknown]
  - Pyrexia [Unknown]
  - Renal pain [Not Recovered/Not Resolved]
  - Asthenia [Recovered/Resolved]
  - Muscle atrophy [Unknown]
  - Insomnia [Recovered/Resolved]

NARRATIVE: CASE EVENT DATE: 201609
